FAERS Safety Report 7996758-5 (Version None)
Quarter: 2011Q4

REPORT INFORMATION
  Report Type: 
  Country: None (occurrence: None)
  Receive Date: 20111221
  Receipt Date: 20111209
  Transmission Date: 20120403
  Serious: Yes (Hospitalization)
  Sender: FDA-Public Use
  Company Number: GB-JNJFOC-20111107962

PATIENT
  Sex: Male
  Weight: 56 kg

DRUGS (4)
  1. ADALIMUMAB [Concomitant]
     Dates: start: 20090302, end: 20090701
  2. INFLIXIMAB, RECOMBINANT [Suspect]
     Indication: CROHN'S DISEASE
     Route: 042
     Dates: start: 20041028, end: 20090219
  3. AZATHIOPRINE [Concomitant]
  4. OMEPRAZOLE [Concomitant]

REACTIONS (1)
  - CROHN'S DISEASE [None]
